FAERS Safety Report 9444961 (Version 1)
Quarter: 2013Q3

REPORT INFORMATION
  Report Type: Spontaneous
  Country: ES (occurrence: None)
  Receive Date: 20130724
  Receipt Date: 20130724
  Transmission Date: 20140515
  Serious: Yes (Hospitalization)
  Sender: FDA-Public Use
  Company Number: BTG00075

PATIENT
  Age: 71 Year
  Sex: Male

DRUGS (13)
  1. DIGIFAB [Suspect]
     Indication: TOXICITY TO VARIOUS AGENTS
  2. DIGOXIN (DIGOXIN) [Suspect]
     Indication: ATRIAL FIBRILLATION
     Dosage: VIAL
  3. DIGOXIN [Suspect]
     Indication: ATRIAL FIBRILLATION
  4. POTASSIUM (POTASSIUM BICARBONATE, POTASSIUM BITRATRATE) [Concomitant]
  5. OMEPRAZOLE (OMEPRAZOLE) [Concomitant]
  6. ENOXAPARIN (ENOXAPARIN) [Concomitant]
  7. ACETYLCYSTEINE (ACEYLCYSTEINE) [Concomitant]
  8. ACETYLSALICYCLIC ACID (ACETYLSALICYCLIC ACID) [Concomitant]
  9. ERTHROPOLETIN (ERYTHROPOLETIN) [Concomitant]
  10. MEROPENEM (MEROPENEM) [Concomitant]
  11. VANCOMYCIN (VANCOMYCIN) [Concomitant]
  12. AMIODARONE (AMIODARONE HYDROCHLORIDE) [Concomitant]
  13. AMIODARONE (AMIODARONE HYDROCHLORIDE) [Concomitant]

REACTIONS (5)
  - Ventricular flutter [None]
  - Ventricular fibrillation [None]
  - Cardio-respiratory arrest [None]
  - Toxicity to various agents [None]
  - Drug ineffective [None]
